FAERS Safety Report 15331229 (Version 1)
Quarter: 2018Q3

REPORT INFORMATION
  Report Type: Spontaneous
  Country: IN (occurrence: IN)
  Receive Date: 20180829
  Receipt Date: 20180829
  Transmission Date: 20181010
  Serious: Yes (Death)
  Sender: FDA-Public Use
  Company Number: IN-PFIZER INC-2018335286

PATIENT
  Age: 59 Year
  Sex: Male

DRUGS (2)
  1. CAMPTO [Suspect]
     Active Substance: IRINOTECAN
     Dosage: 40 MG, UNK (40MG 1)
     Route: 042
  2. CAMPTO [Suspect]
     Active Substance: IRINOTECAN
     Indication: METASTATIC NEOPLASM
     Dosage: 200 MG, UNK (100MG 2)
     Route: 042

REACTIONS (2)
  - Drug dispensing error [Unknown]
  - Death [Fatal]

NARRATIVE: CASE EVENT DATE: 20180812
